FAERS Safety Report 6844520-9 (Version None)
Quarter: 2010Q2

REPORT INFORMATION
  Report Type: 
  Country: None (occurrence: None)
  Receive Date: 20100629
  Receipt Date: 20100506
  Transmission Date: 20101027
  Serious: No
  Sender: FDA-Public Use
  Company Number: US-WYE-H15018310

PATIENT
  Age: 83 Year
  Sex: Female
  Weight: 68.1 kg

DRUGS (5)
  1. PRISTIQ [Suspect]
     Indication: DEPRESSION
     Dosage: 50 MG 1X PER 1 DAY; MISSED HER DOSE FOR 3 DAYS
     Dates: start: 20100401, end: 20100401
  2. PRISTIQ [Suspect]
     Indication: DEPRESSION
     Dosage: 50 MG 1X PER 1 DAY; MISSED HER DOSE FOR 3 DAYS
     Dates: start: 20100401
  3. DIAZEPAM [Concomitant]
  4. ARICEPT [Concomitant]
  5. LORTAB [Concomitant]

REACTIONS (2)
  - DRUG DOSE OMISSION [None]
  - SOMNOLENCE [None]
